FAERS Safety Report 10051451 (Version 2)
Quarter: 2014Q2

REPORT INFORMATION
  Report Type: Spontaneous
  Country: US (occurrence: US)
  Receive Date: 20140401
  Receipt Date: 20140411
  Transmission Date: 20141212
  Serious: Yes (Other)
  Sender: FDA-Public Use
  Company Number: US-LUNDBECK-DKLU1098559

PATIENT
  Sex: Male

DRUGS (7)
  1. SABRIL (FOR ORAL SOLUTION) [Suspect]
     Indication: INFANTILE SPASMS
     Route: 048
     Dates: start: 20130909, end: 20140313
  2. SABRIL (FOR ORAL SOLUTION) [Suspect]
     Route: 048
     Dates: start: 20130909, end: 20140313
  3. SABRIL (FOR ORAL SOLUTION) [Suspect]
     Route: 048
     Dates: start: 20140314
  4. SABRIL (FOR ORAL SOLUTION) [Suspect]
     Route: 048
     Dates: start: 20140314
  5. ONFI [Concomitant]
     Indication: PRODUCT USED FOR UNKNOWN INDICATION
  6. TOPIRAMATE [Concomitant]
     Indication: PRODUCT USED FOR UNKNOWN INDICATION
  7. KEPPRA [Concomitant]
     Indication: PRODUCT USED FOR UNKNOWN INDICATION

REACTIONS (1)
  - Infantile spasms [Unknown]
